FAERS Safety Report 10055588 (Version 1)
Quarter: 2014Q2

REPORT INFORMATION
  Report Type: Spontaneous
  Country: IT (occurrence: IT)
  Receive Date: 20140403
  Receipt Date: 20140403
  Transmission Date: 20141212
  Serious: Yes (Hospitalization)
  Sender: FDA-Public Use
  Company Number: IT-ROCHE-1373906

PATIENT
  Age: 48 Year
  Sex: Female

DRUGS (1)
  1. ROACTEMRA [Suspect]
     Indication: INTERSTITIAL GRANULOMATOUS DERMATITIS
     Route: 042
     Dates: start: 20140109, end: 20140210

REACTIONS (6)
  - Asthenia [Not Recovered/Not Resolved]
  - Dyspnoea [Not Recovered/Not Resolved]
  - Hyperpyrexia [Not Recovered/Not Resolved]
  - Oedema peripheral [Not Recovered/Not Resolved]
  - Vasculitic rash [Not Recovered/Not Resolved]
  - Off label use [Unknown]
